FAERS Safety Report 7261727-X (Version None)
Quarter: 2011Q1

REPORT INFORMATION
  Report Type: 
  Country: None (occurrence: None)
  Receive Date: 20110120
  Receipt Date: 20110111
  Transmission Date: 20110831
  Serious: Yes (Death)
  Sender: FDA-Public Use
  Company Number: 2011SP000106

PATIENT
  Sex: Male

DRUGS (2)
  1. BUDESONIDE [Concomitant]
  2. BROVANA [Suspect]
     Dosage: INHALATION
     Route: 055

REACTIONS (1)
  - DEATH [None]
